FAERS Safety Report 4459024-0 (Version None)
Quarter: 2004Q3

REPORT INFORMATION
  Report Type: 
  Country: None (occurrence: None)
  Receive Date: 20040921
  Receipt Date: 20040921
  Transmission Date: 20050211
  Serious: Yes (Hospitalization)
  Sender: FDA-Public Use
  Company Number: None

PATIENT
  Sex: Female
  Weight: 59.1 kg

DRUGS (7)
  1. GLEEVEC [Suspect]
     Indication: GLIOBLASTOMA MULTIFORME
     Dosage: 400MG QD X 8 PO
     Route: 048
     Dates: start: 20040713, end: 20040720
  2. TEMODAR [Suspect]
     Indication: GLIOBLASTOMA MULTIFORME
     Dosage: 250 MG QD X 5 PO
     Route: 048
     Dates: start: 20040716, end: 20040720
  3. KEPPRA [Concomitant]
  4. DECADRON [Concomitant]
  5. ADVAIR DISKUS 100/50 [Concomitant]
  6. PROTONIX [Concomitant]
  7. OSCAL [Concomitant]

REACTIONS (5)
  - ASTHENIA [None]
  - CONVULSION [None]
  - LETHARGY [None]
  - MEDICATION ERROR [None]
  - URINARY INCONTINENCE [None]
